FAERS Safety Report 5888957-3 (Version None)
Quarter: 2008Q3

REPORT INFORMATION
  Report Type: 
  Country: None (occurrence: None)
  Receive Date: 20080919
  Receipt Date: 20080915
  Transmission Date: 20090109
  Serious: Yes (Hospitalization)
  Sender: FDA-Public Use
  Company Number: US-TEVA-173440USA

PATIENT
  Sex: Male

DRUGS (5)
  1. METOPROLOL TARTRATE TABLETS USP 50MG + 100MG [Suspect]
     Dosage: 1.5 TABLETS TWICE PER DAY
     Dates: start: 20080620, end: 20080622
  2. SIMVASTATIN [Concomitant]
  3. CYANOCOBALAMIN [Concomitant]
  4. PYRIDOXINE HYDROCHLORIDE [Concomitant]
  5. MULTI-VITAMIN [Concomitant]

REACTIONS (2)
  - MYASTHENIA GRAVIS [None]
  - SWOLLEN TONGUE [None]
